FAERS Safety Report 6720293-5 (Version None)
Quarter: 2010Q2

REPORT INFORMATION
  Report Type: 
  Country: None (occurrence: None)
  Receive Date: 20100511
  Receipt Date: 20100506
  Transmission Date: 20101027
  Serious: Yes (Hospitalization, Other)
  Sender: FDA-Public Use
  Company Number: CA-PFIZER INC-2010055866

PATIENT
  Age: 57 Year
  Sex: Female

DRUGS (3)
  1. BLINDED *NO SUBJECT DRUG [Suspect]
  2. BLINDED *PLACEBO [Suspect]
  3. BLINDED MARAVIROC [Suspect]

REACTIONS (1)
  - DIABETES MELLITUS INADEQUATE CONTROL [None]
